FAERS Safety Report 16186080 (Version 1)
Quarter: 2019Q2

REPORT INFORMATION
  Report Type: Spontaneous
  Country: US (occurrence: US)
  Receive Date: 20190411
  Receipt Date: 20190411
  Transmission Date: 20190711
  Serious: Yes (Other)
  Sender: FDA-Public Use
  Company Number: US-NAPPMUNDI-USA-2019-0146804

PATIENT
  Sex: Female

DRUGS (1)
  1. BETADINE [Suspect]
     Active Substance: POVIDONE-IODINE
     Indication: ACCIDENTAL EXPOSURE TO PRODUCT PACKAGING BY CHILD
     Dosage: 1-2 TBSP, SINGLE
     Route: 048

REACTIONS (15)
  - Oropharyngeal swelling [Unknown]
  - Food allergy [Not Recovered/Not Resolved]
  - Weight loss poor [Not Recovered/Not Resolved]
  - Rash generalised [Unknown]
  - Throat irritation [Recovered/Resolved]
  - Rash [Not Recovered/Not Resolved]
  - Blood cholesterol increased [Not Recovered/Not Resolved]
  - Pallor [Unknown]
  - Fibromyalgia [Unknown]
  - Madarosis [Not Recovered/Not Resolved]
  - Urticaria [Unknown]
  - Hot flush [Unknown]
  - Accidental exposure to product [Recovered/Resolved]
  - Thyroid disorder [Unknown]
  - Skin discolouration [Recovered/Resolved]
